FAERS Safety Report 9849050 (Version 1)
Quarter: 2013Q4

REPORT INFORMATION
  Report Type: Spontaneous
  Country: US (occurrence: None)
  Receive Date: 20131226
  Receipt Date: 20131226
  Transmission Date: 20140711
  Serious: Yes (Other)
  Sender: FDA-Public Use
  Company Number: PHEH2012US017639

PATIENT
  Age: 73 Year
  Sex: Female

DRUGS (8)
  1. ZOMETA [Suspect]
     Indication: OSTEOPOROSIS
     Dosage: UNK UKN, ONCE A DAY, ORAL
     Route: 048
     Dates: start: 2010, end: 201203
  2. ZOMETA [Suspect]
     Indication: NEOPLASM MALIGNANT
     Dosage: UNK UKN, ONCE A DAY, ORAL
     Route: 048
     Dates: start: 2010, end: 201203
  3. FEMARA [Suspect]
     Dosage: UNK UKN, ONCE A DAY, ORAL
     Route: 048
     Dates: start: 2011, end: 201203
  4. TAMOXIFEN SANDOZ [Suspect]
     Dosage: UNK UKN, ONCE A DAY, ORAL
     Route: 048
  5. FASLODEX (FULVESTRANT) INJECTION [Concomitant]
  6. ARIMIDEX (ANASTROZOLE) [Concomitant]
  7. TOPROL (METOPROLOL SUCCINATE) [Concomitant]
  8. ASPIRIN (ACETYLSALICYLIC ACID) [Concomitant]

REACTIONS (4)
  - Neoplasm [None]
  - Metastases to bone marrow [None]
  - Drug ineffective [None]
  - Red blood cell count decreased [None]
